FAERS Safety Report 4585576-6 (Version None)
Quarter: 2005Q1

REPORT INFORMATION
  Report Type: 
  Country: None (occurrence: None)
  Receive Date: 20050217
  Receipt Date: 20050210
  Transmission Date: 20050727
  Serious: Yes (Hospitalization)
  Sender: FDA-Public Use
  Company Number: FR-MERCK-0502FRA00038

PATIENT
  Age: 79 Year
  Sex: Male

DRUGS (6)
  1. ASPIRIN LYSINE [Suspect]
     Route: 048
  2. GLIMEPIRIDE [Suspect]
     Route: 048
  3. BISOPROLOL [Suspect]
     Route: 048
  4. ESOMEPRAZOLE MAGNESIUM [Suspect]
     Route: 048
  5. FUROSEMIDE [Suspect]
     Route: 048
  6. ZOCOR [Suspect]
     Route: 048

REACTIONS (1)
  - DUODENAL ULCER [None]
